FAERS Safety Report 8306936-3 (Version None)
Quarter: 2012Q2

REPORT INFORMATION
  Report Type: 
  Country: None (occurrence: None)
  Receive Date: 20120424
  Receipt Date: 20120412
  Transmission Date: 20120825
  Serious: Yes (Other)
  Sender: FDA-Public Use
  Company Number: FR-UCBSA-055604

PATIENT
  Age: 50 Year
  Sex: Female

DRUGS (3)
  1. ORLISTAT [Interacting]
     Indication: WEIGHT CONTROL
  2. VALPROATE SODIUM [Interacting]
     Indication: PARTIAL SEIZURES
  3. LACOSAMIDE [Suspect]
     Indication: PARTIAL SEIZURES

REACTIONS (3)
  - MALNUTRITION [None]
  - CONVULSION [None]
  - DRUG INTERACTION [None]
